FAERS Safety Report 9146099 (Version 1)
Quarter: 2013Q1

REPORT INFORMATION
  Report Type: Spontaneous
  Country: US (occurrence: None)
  Receive Date: 20130227
  Receipt Date: 20130227
  Transmission Date: 20140127
  Serious: Yes (Hospitalization)
  Sender: FDA-Public Use
  Company Number: None

PATIENT
  Age: 55 Year
  Sex: Female

DRUGS (15)
  1. ORENCIA [Suspect]
     Dosage: ORENCIA 125MG UNDER THE SKIN WEEKLY
     Route: 058
     Dates: start: 20120223
  2. OXYCODONE [Concomitant]
  3. FENTANYL [Concomitant]
  4. PREDNISONE [Concomitant]
  5. SEPTRA [Concomitant]
  6. LISINOPRIL [Concomitant]
  7. HYDROXYCHLOROQUINE [Concomitant]
  8. BUMEX [Concomitant]
  9. WARFARIN [Concomitant]
  10. METFORMIN [Concomitant]
  11. LEVTHYROXINE [Concomitant]
  12. VITAMIN D2 [Concomitant]
  13. VENLAFAXINE [Concomitant]
  14. CLINDAMYCIN [Concomitant]
  15. VENLAFAXINE [Concomitant]

REACTIONS (1)
  - Cellulitis [None]
